FAERS Safety Report 11667593 (Version 1)
Quarter: 2015Q4

REPORT INFORMATION
  Report Type: Spontaneous
  Country: US (occurrence: US)
  Receive Date: 20151027
  Receipt Date: 20151027
  Transmission Date: 20160304
  Serious: No
  Sender: FDA-Public Use
  Company Number: US-TEVA-600125USA

PATIENT
  Sex: Female

DRUGS (3)
  1. NUVIGIL [Suspect]
     Active Substance: ARMODAFINIL
     Indication: HYPERSOMNIA
     Dates: end: 20151006
  2. ALPRAZOLAM. [Concomitant]
     Active Substance: ALPRAZOLAM
  3. METHADONE [Concomitant]
     Active Substance: METHADONE HYDROCHLORIDE

REACTIONS (10)
  - Dehydration [Unknown]
  - Anxiety [Unknown]
  - Confusional state [Unknown]
  - Depressed mood [Unknown]
  - Panic attack [Unknown]
  - Blood pressure increased [Unknown]
  - Rash [Unknown]
  - Pollakiuria [Unknown]
  - Chest discomfort [Recovered/Resolved]
  - Dizziness [Unknown]
